FAERS Safety Report 12300731 (Version 3)
Quarter: 2016Q2

REPORT INFORMATION
  Report Type: Spontaneous
  Country: US (occurrence: US)
  Receive Date: 20160425
  Receipt Date: 20160519
  Transmission Date: 20160815
  Serious: Yes (Other)
  Sender: FDA-Public Use
  Company Number: US-PFIZER INC-2016223785

PATIENT
  Age: 72 Year
  Sex: Female
  Weight: 56.25 kg

DRUGS (8)
  1. OXYGEN. [Concomitant]
     Active Substance: OXYGEN
     Indication: SLEEP DISORDER
     Dosage: USES AT NIGHT
     Dates: start: 201511
  2. VFEND [Suspect]
     Active Substance: VORICONAZOLE
     Indication: FUNGAL INFECTION
     Dosage: 200 MG, 2X/DAY (TAKE 200MG TABLET ONE BY MOUTH TWICE A DAY)
     Route: 048
     Dates: start: 20160412, end: 20160422
  3. ADVAIR HFA [Concomitant]
     Active Substance: FLUTICASONE PROPIONATE\SALMETEROL XINAFOATE
     Indication: CHRONIC OBSTRUCTIVE PULMONARY DISEASE
     Dosage: INHALER, 1X/DAY
     Route: 055
  4. WARFARIN [Suspect]
     Active Substance: WARFARIN
     Dosage: 6 MG, UNK
     Dates: start: 20160417, end: 20160418
  5. SYMBICORT [Concomitant]
     Active Substance: BUDESONIDE\FORMOTEROL FUMARATE DIHYDRATE
     Indication: CHRONIC OBSTRUCTIVE PULMONARY DISEASE
     Dosage: 2 DF, 1X/DAY (INHALER TWO PUFFS ONCE A DAY)
     Route: 055
  6. ALBUTEROL /00139501/ [Concomitant]
     Active Substance: ALBUTEROL
     Indication: CHRONIC OBSTRUCTIVE PULMONARY DISEASE
     Dosage: NEBULIZER, 1X/DAY
     Dates: start: 201512
  7. VFEND [Suspect]
     Active Substance: VORICONAZOLE
     Indication: PULMONARY MYCOSIS
     Dosage: 4 DF, FOUR TABLETS FIRST DAY
     Route: 048
     Dates: start: 20160411, end: 20160411
  8. WARFARIN [Suspect]
     Active Substance: WARFARIN
     Dosage: 5 MG, UNK

REACTIONS (12)
  - Wound haemorrhage [Unknown]
  - Visual acuity reduced [Unknown]
  - Limb injury [Unknown]
  - Erythema [Recovering/Resolving]
  - Rash papular [Unknown]
  - Blood disorder [Unknown]
  - Vision blurred [Recovered/Resolved]
  - Haematochezia [Unknown]
  - Pain in extremity [Recovering/Resolving]
  - Peripheral swelling [Recovering/Resolving]
  - Dyspnoea [Recovered/Resolved]
  - Chromatopsia [Recovered/Resolved]

NARRATIVE: CASE EVENT DATE: 20160411
